FAERS Safety Report 4490845-4 (Version None)
Quarter: 2004Q4

REPORT INFORMATION
  Report Type: 
  Country: None (occurrence: None)
  Receive Date: 20041027
  Receipt Date: 20041020
  Transmission Date: 20050328
  Serious: Yes (Life-Threatening)
  Sender: FDA-Public Use
  Company Number: MK200410-0246-1

PATIENT
  Age: 76 Year
  Sex: Female

DRUGS (9)
  1. ANAFRANIL [Suspect]
  2. NICARDIPINE HCL [Suspect]
  3. TEMESTA [Suspect]
  4. HALDOL [Suspect]
  5. RIVOTRIL [Suspect]
  6. TENORMIN [Suspect]
  7. TRIVASTAL [Suspect]
  8. INIPOMP [Suspect]
  9. KARDEGIC [Suspect]

REACTIONS (3)
  - BLOOD CHOLESTEROL INCREASED [None]
  - HEPATIC STEATOSIS [None]
  - HEPATITIS CHOLESTATIC [None]
